FAERS Safety Report 10136491 (Version 1)
Quarter: 2014Q2

REPORT INFORMATION
  Report Type: Spontaneous
  Country: US (occurrence: None)
  Receive Date: 20140425
  Receipt Date: 20140425
  Transmission Date: 20141212
  Serious: Yes (Other)
  Sender: FDA-Public Use
  Company Number: 001714950A

PATIENT
  Age: 14 Year
  Sex: Male

DRUGS (5)
  1. PROACTIV RENEWING CLEANSER [Suspect]
     Indication: ACNE
     Dosage: TWICE DAILY DERMAL
     Dates: start: 20140314, end: 20140318
  2. PROACTIV REPAIRING TREATMENT [Suspect]
     Indication: ACNE
     Dosage: TWICE DAILY DERMAL
     Dates: start: 20140314, end: 20140318
  3. CONCERTA [Concomitant]
  4. WELLBUTRIN [Concomitant]
  5. SEROQUEL [Concomitant]

REACTIONS (8)
  - Erythema [None]
  - Swelling [None]
  - Burning sensation [None]
  - Obstructive airways disorder [None]
  - Hypersensitivity [None]
  - Urticaria [None]
  - Rash [None]
  - Agitation [None]
